APPROVED DRUG PRODUCT: HALOPERIDOL
Active Ingredient: HALOPERIDOL
Strength: 1MG
Dosage Form/Route: TABLET;ORAL
Application: A070982 | Product #001
Applicant: WATSON LABORATORIES INC
Approved: Mar 6, 1987 | RLD: No | RS: No | Type: DISCN